FAERS Safety Report 23623243 (Version 1)
Quarter: 2024Q1

REPORT INFORMATION
  Report Type: Spontaneous
  Country: US (occurrence: US)
  Receive Date: 20240312
  Receipt Date: 20240312
  Transmission Date: 20240410
  Serious: Yes (Life-Threatening, Hospitalization)
  Sender: FDA-Public Use
  Company Number: US-PROVENTION BIO, INC.-US-PRAG-24-00002

PATIENT
  Age: 16 Year
  Sex: Female
  Weight: 81 kg

DRUGS (4)
  1. TZIELD [Suspect]
     Active Substance: TEPLIZUMAB-MZWV
     Indication: Diabetes prophylaxis
     Dosage: 130 MICROGRAM, SINGLE (65 MCG/M2)
     Route: 041
     Dates: start: 20240108, end: 20240109
  2. ADMELOG [Concomitant]
     Active Substance: INSULIN LISPRO
     Dosage: UNK
     Dates: start: 20231101, end: 20240110
  3. ZOFRAN [Concomitant]
     Active Substance: ONDANSETRON HYDROCHLORIDE
     Dosage: 8 MG, WITH A 4MG REVISION, QD
     Route: 042
     Dates: start: 20240108, end: 20240108
  4. BENADRYL [Concomitant]
     Active Substance: DIPHENHYDRAMINE HYDROCHLORIDE
     Dosage: 25 MG, QD
     Route: 048
     Dates: start: 20240108, end: 20240108

REACTIONS (11)
  - Hyperglycaemia [Recovering/Resolving]
  - Hypotension [Recovered/Resolved]
  - Dehydration [Recovered/Resolved]
  - Pallor [Recovered/Resolved]
  - Heart rate increased [Recovered/Resolved]
  - Back pain [Recovered/Resolved]
  - Pyrexia [Recovered/Resolved]
  - Vomiting [Recovered/Resolved]
  - Nausea [Recovered/Resolved]
  - Device related infection [Unknown]
  - Off label use [Unknown]

NARRATIVE: CASE EVENT DATE: 20240108
